FAERS Safety Report 8720200 (Version 3)
Quarter: 2012Q4

REPORT INFORMATION
  Report Type: 
  Country: AR (occurrence: AR)
  Receive Date: 20120813
  Receipt Date: 20121026
  Transmission Date: 20130627
  Serious: Yes (Other)
  Sender: FDA-Public Use
  Company Number: AR-SHIRE-ALL1-2012-03772

PATIENT
  Age: 31 Year
  Sex: Male
  Weight: 60 kg

DRUGS (6)
  1. VPRIV [Suspect]
     Indication: GAUCHER^S DISEASE
     Dosage: 60 mg/kg, 1x/2wks
     Route: 041
     Dates: start: 201206
  2. PROGRAF [Concomitant]
     Indication: PROPHYLAXIS AGAINST TRANSPLANT REJECTION
     Dosage: 1 mg, 1x/day:qd (6 mls)
     Route: 065
     Dates: start: 201201
  3. MYFORTIC [Concomitant]
     Indication: PROPHYLAXIS AGAINST TRANSPLANT REJECTION
     Dosage: 360 mg, 1x/day:qd
     Route: 065
     Dates: start: 201201
  4. MEPREDNISONE [Concomitant]
     Indication: PRODUCT USED FOR UNKNOWN INDICATION
     Dosage: 4 mg, 1x/day:qd
     Route: 065
     Dates: start: 201201
  5. OMEPRAZOLE [Concomitant]
     Indication: PRODUCT USED FOR UNKNOWN INDICATION
     Dosage: 20 mg, 1x/day:qd
     Route: 048
     Dates: start: 201201
  6. MAGNESIUM CITRATE [Concomitant]
     Indication: PRODUCT USED FOR UNKNOWN INDICATION
     Dosage: 538 mg, 2x/day:bid
     Route: 065
     Dates: start: 201201

REACTIONS (1)
  - Hepatomegaly [Unknown]
